FAERS Safety Report 18589268 (Version 2)
Quarter: 2020Q4

REPORT INFORMATION
  Report Type: Report from Study
  Country: None (occurrence: CA)
  Receive Date: 20201208
  Receipt Date: 20201227
  Transmission Date: 20210114
  Serious: Yes (Hospitalization)
  Sender: FDA-Public Use
  Company Number: CA-ABBVIE-20K-028-3680994-00

PATIENT
  Sex: Female

DRUGS (2)
  1. HUMIRA [Suspect]
     Active Substance: ADALIMUMAB
     Indication: PRODUCT USED FOR UNKNOWN INDICATION
     Route: 058
  2. HUMIRA [Suspect]
     Active Substance: ADALIMUMAB
     Indication: CROHN^S DISEASE
     Route: 058
     Dates: start: 20190824

REACTIONS (9)
  - Respiratory symptom [Unknown]
  - Gastrointestinal disorder [Recovering/Resolving]
  - Weight decreased [Not Recovered/Not Resolved]
  - Cystitis [Recovered/Resolved]
  - Asthenia [Not Recovered/Not Resolved]
  - Weight increased [Unknown]
  - Blood potassium decreased [Unknown]
  - Hypophagia [Not Recovered/Not Resolved]
  - Ear infection [Not Recovered/Not Resolved]

NARRATIVE: CASE EVENT DATE: 2020
